FAERS Safety Report 7539701-5 (Version None)
Quarter: 2011Q2

REPORT INFORMATION
  Report Type: 
  Country: None (occurrence: None)
  Receive Date: 20110610
  Receipt Date: 20110607
  Transmission Date: 20111010
  Serious: Yes (Other)
  Sender: FDA-Public Use
  Company Number: US-PFIZER INC-2005099230

PATIENT
  Sex: Male
  Weight: 68.934 kg

DRUGS (14)
  1. LIPITOR [Suspect]
     Indication: BLOOD CHOLESTEROL INCREASED
     Dosage: 10 MG, 1X/DAY
     Route: 048
  2. CELEBREX [Suspect]
     Indication: HIP ARTHROPLASTY
  3. FLOMAX [Concomitant]
     Indication: PROSTATOMEGALY
     Dosage: UNK
     Route: 065
  4. CELEBREX [Suspect]
     Indication: SPINAL COLUMN STENOSIS
     Dosage: 200 MG, 2X/DAY
     Route: 048
     Dates: start: 19960101
  5. BRIMONIDINE [Concomitant]
     Indication: GLAUCOMA
     Dosage: UNK
  6. ALTACE [Concomitant]
     Indication: BLOOD PRESSURE ABNORMAL
     Dosage: UNK
     Route: 065
  7. TOPROL-XL [Concomitant]
     Indication: BLOOD PRESSURE ABNORMAL
     Dosage: UNK
     Route: 065
  8. PROSCAR [Concomitant]
     Indication: PROSTATOMEGALY
     Dosage: UNK
  9. LUMIGAN [Concomitant]
     Indication: GLAUCOMA
     Dosage: UNK
  10. CELEBREX [Suspect]
     Indication: SCIATICA
  11. CELEBREX [Suspect]
     Indication: ARTHRITIS
  12. ASPIRIN [Concomitant]
     Dosage: 81 MG, UNK
  13. CELEBREX [Suspect]
     Indication: PAIN IN EXTREMITY
  14. BETOPTIC [Concomitant]
     Indication: GLAUCOMA
     Dosage: UNK

REACTIONS (4)
  - DRUG DOSE OMISSION [None]
  - SPINAL COLUMN STENOSIS [None]
  - SCIATICA [None]
  - DRUG EFFECT DECREASED [None]
